FAERS Safety Report 13720022 (Version 3)
Quarter: 2017Q3

REPORT INFORMATION
  Report Type: Report from Study
  Country: None (occurrence: CO)
  Receive Date: 20170705
  Receipt Date: 20170706
  Transmission Date: 20171127
  Serious: Yes (Death)
  Sender: FDA-Public Use
  Company Number: CO-ABBVIE-17P-036-2028556-00

PATIENT
  Age: 54 Year
  Sex: Male

DRUGS (1)
  1. ZEMPLAR [Suspect]
     Active Substance: PARICALCITOL
     Indication: HYPERPARATHYROIDISM SECONDARY
     Dosage: POST DIALYSIS
     Route: 042
     Dates: start: 20150106, end: 20170411

REACTIONS (9)
  - Soft tissue infection [Fatal]
  - Joint range of motion decreased [Fatal]
  - Shoulder deformity [Fatal]
  - Sepsis [Fatal]
  - Gastrointestinal necrosis [Fatal]
  - Systemic inflammatory response syndrome [Fatal]
  - Decubitus ulcer [Fatal]
  - Necrotising fasciitis [Fatal]
  - Fall [Fatal]

NARRATIVE: CASE EVENT DATE: 20170620
